FAERS Safety Report 21191903 (Version 2)
Quarter: 2022Q3

REPORT INFORMATION
  Report Type: Spontaneous
  Country: JP (occurrence: JP)
  Receive Date: 20220809
  Receipt Date: 20220811
  Transmission Date: 20221026
  Serious: Yes (Hospitalization, Other)
  Sender: FDA-Public Use
  Company Number: JP-UCBSA-2022046148

PATIENT
  Sex: Female
  Weight: 2.762 kg

DRUGS (1)
  1. LEVETIRACETAM [Suspect]
     Active Substance: LEVETIRACETAM
     Indication: Epilepsy
     Dosage: UNKNOWN DOSE
     Route: 064

REACTIONS (3)
  - Meconium aspiration syndrome [Unknown]
  - Foetal distress syndrome [Unknown]
  - Maternal exposure during pregnancy [Unknown]
